FAERS Safety Report 7133410-2 (Version None)
Quarter: 2010Q4

REPORT INFORMATION
  Report Type: 
  Country: None (occurrence: None)
  Receive Date: 20101202
  Receipt Date: 20101122
  Transmission Date: 20110411
  Serious: Yes (Death, Other)
  Sender: FDA-Public Use
  Company Number: KR-GENENTECH-305544

PATIENT

DRUGS (2)
  1. RITUXIMAB [Suspect]
     Indication: GRAFT VERSUS HOST DISEASE
     Dosage: 375 MG/M2, UNK
     Route: 042
  2. RITUXIMAB [Suspect]
     Dosage: 375 MG/M2, UNK
     Route: 042

REACTIONS (6)
  - DISEASE PROGRESSION [None]
  - GRAFT VERSUS HOST DISEASE [None]
  - INFECTION [None]
  - NO THERAPEUTIC RESPONSE [None]
  - PNEUMONIA [None]
  - THERAPEUTIC RESPONSE DECREASED [None]
